FAERS Safety Report 7307539-X (Version None)
Quarter: 2011Q1

REPORT INFORMATION
  Report Type: 
  Country: None (occurrence: None)
  Receive Date: 20110223
  Receipt Date: 20110216
  Transmission Date: 20110831
  Serious: Yes (Other)
  Sender: FDA-Public Use
  Company Number: US-JNJFOC-20110205366

PATIENT
  Sex: Female
  Weight: 87.09 kg

DRUGS (4)
  1. THYROID THERAPY [Concomitant]
     Indication: THYROID DISORDER
     Route: 048
  2. DURAGESIC-50 [Suspect]
     Indication: BACK PAIN
     Route: 062
  3. UNKNOWN MEDICATION [Concomitant]
     Indication: TREMOR
     Route: 048
  4. UNKNOWN MEDICATION [Concomitant]
     Indication: GASTRIC DISORDER
     Route: 048

REACTIONS (3)
  - EMPHYSEMA [None]
  - THERAPEUTIC RESPONSE DECREASED [None]
  - PAIN [None]
